FAERS Safety Report 13860259 (Version 5)
Quarter: 2017Q4

REPORT INFORMATION
  Report Type: Report from Study
  Country: GB (occurrence: GB)
  Receive Date: 20170811
  Receipt Date: 20171010
  Transmission Date: 20180320
  Serious: Yes (Other)
  Sender: FDA-Public Use
  Company Number: PHHO2017GB011165

PATIENT
  Age: 77 Year
  Sex: Male
  Weight: 49.4 kg

DRUGS (13)
  1. PRASUGREL. [Concomitant]
     Active Substance: PRASUGREL
     Indication: ANTIPLATELET THERAPY
     Dosage: 10 MG, QD
     Route: 065
     Dates: start: 20130731, end: 201411
  2. ACZ885 [Suspect]
     Active Substance: CANAKINUMAB
     Indication: CARDIOVASCULAR EVENT PROPHYLAXIS
     Route: 058
  3. ATORVASTATIN [Concomitant]
     Active Substance: ATORVASTATIN
     Indication: MYOCARDIAL INFARCTION
     Dosage: 80 MG, QD
     Route: 065
     Dates: start: 20130731
  4. ACZ885 [Suspect]
     Active Substance: CANAKINUMAB
     Indication: CARDIOVASCULAR EVENT PROPHYLAXIS
     Dosage: 300 MG, A
     Route: 058
     Dates: start: 20131017, end: 20170707
  5. APIXABAN [Concomitant]
     Active Substance: APIXABAN
     Indication: ATRIAL FIBRILLATION
     Dosage: 5 MG, BID
     Route: 065
     Dates: start: 20161029, end: 20170712
  6. COCODAMOL [Concomitant]
     Active Substance: ACETAMINOPHEN\CODEINE PHOSPHATE
     Indication: SPINAL OSTEOARTHRITIS
     Dosage: 60 MG, QD
     Route: 065
     Dates: start: 19990101, end: 20170817
  7. ASPIRIN. [Concomitant]
     Active Substance: ASPIRIN
     Indication: ANTIPLATELET THERAPY
     Dosage: 75 MG, QD
     Route: 065
     Dates: start: 20130731
  8. BISOPROLOL [Concomitant]
     Active Substance: BISOPROLOL
     Indication: PROPHYLAXIS
     Dosage: 2.5 MG, QD
     Route: 065
     Dates: start: 20130731
  9. GLYCERYL TRINITRATE [Concomitant]
     Active Substance: NITROGLYCERIN
     Indication: ANTICOAGULANT THERAPY
     Dosage: 400 UG, PRN
     Route: 065
     Dates: start: 20170731
  10. RAMIPRIL. [Concomitant]
     Active Substance: RAMIPRIL
     Indication: PROPHYLAXIS
     Dosage: 2.5 MG, QD
     Route: 065
     Dates: start: 20130731
  11. GLYCERYL TRINITRATE [Concomitant]
     Active Substance: NITROGLYCERIN
     Indication: ANGINA PECTORIS
  12. DAKTARIN [Concomitant]
     Active Substance: MICONAZOLE NITRATE
     Indication: TINEA PEDIS
     Dosage: 1 APPLICATION BID
     Route: 065
     Dates: start: 20161029
  13. ENTONOX [Concomitant]
     Active Substance: NITROUS OXIDE\OXYGEN
     Indication: PRODUCT USED FOR UNKNOWN INDICATION
     Route: 055

REACTIONS (1)
  - Rectal cancer [Not Recovered/Not Resolved]

NARRATIVE: CASE EVENT DATE: 20170725
